FAERS Safety Report 22965793 (Version 2)
Quarter: 2023Q4

REPORT INFORMATION
  Report Type: Report from Study
  Country: US (occurrence: US)
  Receive Date: 20230921
  Receipt Date: 20231120
  Transmission Date: 20240110
  Serious: Yes (Other)
  Sender: FDA-Public Use
  Company Number: US-TEVA-2023-US-2927349

PATIENT
  Age: 16 Year
  Sex: Female

DRUGS (2)
  1. ISOTRETINOIN [Suspect]
     Active Substance: ISOTRETINOIN
     Indication: Product used for unknown indication
     Dosage: 30 MG
     Dates: start: 20230103
  2. ISOTRETINOIN [Suspect]
     Active Substance: ISOTRETINOIN
     Dosage: 40 MG
     Dates: start: 20221115, end: 20230314

REACTIONS (3)
  - Unintended pregnancy [Unknown]
  - Abortion spontaneous [Unknown]
  - Investigation noncompliance [Unknown]

NARRATIVE: CASE EVENT DATE: 20230101
